FAERS Safety Report 4513248-2 (Version None)
Quarter: 2004Q4

REPORT INFORMATION
  Report Type: 
  Country: None (occurrence: None)
  Receive Date: 20041130
  Receipt Date: 20041119
  Transmission Date: 20050328
  Serious: Yes (Other)
  Sender: FDA-Public Use
  Company Number: DE-JNJFOC-20040909548

PATIENT
  Sex: Female
  Weight: 65 kg

DRUGS (3)
  1. DURAGESIC [Suspect]
     Indication: PAIN
     Route: 062
  2. NOVALGIN [Concomitant]
  3. BEXTRA [Concomitant]

REACTIONS (4)
  - DRUG EFFECT DECREASED [None]
  - LOSS OF CONSCIOUSNESS [None]
  - PHARMACEUTICAL PRODUCT COMPLAINT [None]
  - RESPIRATORY FAILURE [None]
